FAERS Safety Report 4297244-9 (Version None)
Quarter: 2004Q1

REPORT INFORMATION
  Report Type: 
  Country: None (occurrence: None)
  Receive Date: 20040213
  Receipt Date: 20040203
  Transmission Date: 20041129
  Serious: Yes (Hospitalization)
  Sender: FDA-Public Use
  Company Number: 1524

PATIENT
  Age: 78 Year
  Sex: Female

DRUGS (11)
  1. TARGRETIN [Suspect]
     Indication: LYMPHOMATOID PAPULOSIS
     Dosage: 225 MG QD PO
     Route: 048
     Dates: start: 20020301, end: 20040118
  2. LEVOFLOXACIN [Suspect]
     Dates: start: 20040101, end: 20040101
  3. ATORVASTATN [Concomitant]
  4. DIGOXIN [Concomitant]
  5. FUROSEMIDE [Concomitant]
  6. GEMFIBROZIL [Concomitant]
  7. INSULIN [Concomitant]
  8. METOPROLOL SUCCINATE [Concomitant]
  9. POTASSIUM [Concomitant]
  10. WARFARIN SODIUM [Concomitant]
  11. ROSIGLITAZONE MALEATE [Concomitant]

REACTIONS (8)
  - ANAEMIA HAEMOLYTIC AUTOIMMUNE [None]
  - ASTHENIA [None]
  - CARDIAC FAILURE [None]
  - ECCHYMOSIS [None]
  - INTERNATIONAL NORMALISED RATIO INCREASED [None]
  - PNEUMONIA [None]
  - PROTHROMBIN TIME PROLONGED [None]
  - THROMBOCYTOPENIA [None]
